FAERS Safety Report 8805958 (Version 1)
Quarter: 2012Q4

REPORT INFORMATION
  Report Type: Spontaneous
  Country: AT (occurrence: None)
  Receive Date: 20120918
  Receipt Date: 20120918
  Transmission Date: 20130627
  Serious: Yes (Death, Other)
  Sender: FDA-Public Use
  Company Number: FK201202590

PATIENT
  Age: 14 Year
  Sex: Male

DRUGS (4)
  1. HEPARIN [Suspect]
     Indication: THROMBOSIS PROPHYLAXIS
     Dosage: (NOT OTHERWISE SPECIFIED)
     Route: 058
  2. HEPARIN [Suspect]
     Indication: THROMBOSIS PROPHYLAXIS
     Route: 042
  3. ASPARAGINASE [Suspect]
     Indication: CHEMOTHERAPY
     Dosage: (NOT OTHERWISE SPECIFIED)
     Route: 042
  4. PREDNISONE (PREDNISONE) [Suspect]
     Indication: CHEMOTHERAPY
     Dosage: (NOT OTHERWISE SPECIFIED)
     Route: 042

REACTIONS (21)
  - Weight decreased [None]
  - Myopathy [None]
  - Hyponatraemia [None]
  - Neutropenia [None]
  - Aplasia [None]
  - Pyrexia [None]
  - Oral herpes [None]
  - Pain in extremity [None]
  - Deep vein thrombosis [None]
  - Oedema peripheral [None]
  - Erythema [None]
  - Soft tissue infection [None]
  - Clostridial infection [None]
  - Skin discolouration [None]
  - Sensory loss [None]
  - Leg amputation [None]
  - Haemolysis [None]
  - Septic shock [None]
  - Myofascitis [None]
  - Muscle necrosis [None]
  - Cardiovascular insufficiency [None]
